FAERS Safety Report 9896846 (Version 1)
Quarter: 2014Q1

REPORT INFORMATION
  Report Type: Report from Study
  Country: US (occurrence: US)
  Receive Date: 20140214
  Receipt Date: 20140214
  Transmission Date: 20141002
  Serious: Yes (Life-Threatening)
  Sender: FDA-Public Use
  Company Number: US-ROCHE-1327595

PATIENT
  Sex: Male
  Weight: 79 kg

DRUGS (11)
  1. AVASTIN [Suspect]
     Indication: COLON CANCER
     Dosage: THERAPY DATE: 21/DEC/2009, 12/MAY/2011, 09/JUN/2011, 23/JUN/2011
     Route: 042
  2. 5-FU [Concomitant]
     Dosage: THERAPY DATE: 21/DEC/2009, 12/MAY/2011,09/JUN/2011, 23/JUN/2011
     Route: 042
  3. LEUCOVORIN [Concomitant]
     Dosage: THERAPY DATE: 21/DEC/2009, 12/MAY/2011,09/JUN/2011, 23/JUN/2011
     Route: 042
  4. ALOXI [Concomitant]
     Dosage: THERAPY DATE: 12/MAY/2011,09/JUN/2011, 23/JUN/2011
     Route: 042
  5. DECADRON [Concomitant]
     Dosage: THERAPY DATE: 12/MAY/2011, 09/JUN/2011, 23/JUN/2011
     Route: 042
  6. DECADRON [Concomitant]
     Route: 042
  7. ATIVAN [Concomitant]
     Dosage: THERAPY DATE: 12/MAY/2011,09/JUN/2011, 23/JUN/2011
     Route: 042
  8. TYLENOL [Concomitant]
     Dosage: THERAPY DATE: 12/MAY/2011,09/JUN/2011, 23/JUN/2011
     Route: 048
  9. BENADRYL (UNITED STATES) [Concomitant]
     Dosage: THERAPY DATE: 12/MAY/2011,09/JUN/2011,23/JUN/2011
     Route: 048
  10. VITAMIN B12 [Concomitant]
     Dosage: 12/MAY/2011,09/JUN/2011,23/JUN/2011
     Route: 065
  11. OXALIPLATIN [Concomitant]

REACTIONS (1)
  - Adenocarcinoma of colon [Unknown]
